FAERS Safety Report 17072696 (Version 1)
Quarter: 2019Q4

REPORT INFORMATION
  Report Type: Spontaneous
  Country: JP (occurrence: JP)
  Receive Date: 20191125
  Receipt Date: 20191125
  Transmission Date: 20200122
  Serious: Yes (Hospitalization)
  Sender: FDA-Public Use
  Company Number: JP-NOVOPROD-695566

PATIENT
  Age: 5 Decade
  Sex: Female

DRUGS (5)
  1. VICTOZA [Suspect]
     Active Substance: LIRAGLUTIDE
     Dosage: INCREASE THE DOSE OF VICTOZA BY 0.3MG EVERY WEEK SO THAT IT WOULD BECOME 1.8MG
     Route: 058
     Dates: end: 20190817
  2. AMLODIPINE [Concomitant]
     Active Substance: AMLODIPINE BESYLATE
     Indication: HYPERTENSION
     Dosage: 5 MG, QD
     Route: 048
  3. METFORMIN HYDROCHLORIDE. [Concomitant]
     Active Substance: METFORMIN HYDROCHLORIDE
     Indication: DIABETES MELLITUS
     Dosage: 5 MG, QD
     Route: 048
  4. VICTOZA [Suspect]
     Active Substance: LIRAGLUTIDE
     Indication: DIABETES MELLITUS
     Dosage: UNK
     Route: 058
     Dates: start: 20190704
  5. RENIVACE [Suspect]
     Active Substance: ENALAPRIL
     Indication: HYPERTENSION
     Dosage: 10 MG, QD
     Route: 048

REACTIONS (2)
  - Back pain [Recovered/Resolved]
  - Abdominal pain [Recovered/Resolved]

NARRATIVE: CASE EVENT DATE: 20190817
